FAERS Safety Report 5444313-3 (Version None)
Quarter: 2007Q3

REPORT INFORMATION
  Report Type: 
  Country: None (occurrence: None)
  Receive Date: 20070906
  Receipt Date: 20070904
  Transmission Date: 20080115
  Serious: Yes (Hospitalization)
  Sender: FDA-Public Use
  Company Number: US-BRISTOL-MYERS SQUIBB COMPANY-13897665

PATIENT
  Age: 49 Year
  Sex: Male

DRUGS (1)
  1. TEQUIN [Suspect]
     Dates: start: 20060501, end: 20060506

REACTIONS (12)
  - ABDOMINAL PAIN [None]
  - DIABETES MELLITUS [None]
  - DISORIENTATION [None]
  - DYSURIA [None]
  - HYPERGLYCAEMIA [None]
  - HYPONATRAEMIA [None]
  - IMPAIRED GASTRIC EMPTYING [None]
  - NOCTURIA [None]
  - OESOPHAGEAL SPASM [None]
  - PYREXIA [None]
  - RENAL FAILURE [None]
  - SPEECH DISORDER [None]
